FAERS Safety Report 4411902-4 (Version None)
Quarter: 2004Q3

REPORT INFORMATION
  Report Type: 
  Country: None (occurrence: None)
  Receive Date: 20040730
  Receipt Date: 20031203
  Transmission Date: 20050211
  Serious: No
  Sender: FDA-Public Use
  Company Number: US-GLAXOSMITHKLINE-A0441787A

PATIENT
  Age: 16 Year
  Sex: Female

DRUGS (1)
  1. ZANTAC [Suspect]
     Dosage: 150MG TWICE PER DAY
     Route: 048

REACTIONS (1)
  - CONSTIPATION [None]
